FAERS Safety Report 6214921-0 (Version None)
Quarter: 2009Q2

REPORT INFORMATION
  Report Type: 
  Country: None (occurrence: None)
  Receive Date: 20090604
  Receipt Date: 20090527
  Transmission Date: 20091009
  Serious: Yes (Other)
  Sender: FDA-Public Use
  Company Number: ZA-ABBOTT-09P-143-0576104-00

PATIENT
  Age: 19 Year
  Sex: Male

DRUGS (2)
  1. EPILIM TABLETS [Suspect]
     Indication: ASPERGER'S DISORDER
     Route: 048
  2. RISPERDAL [Suspect]
     Indication: ASPERGER'S DISORDER
     Route: 048
     Dates: start: 20070101

REACTIONS (4)
  - ABNORMAL BEHAVIOUR [None]
  - AGGRESSION [None]
  - DRUG INTERACTION [None]
  - HYPERPHAGIA [None]
